FAERS Safety Report 8094514-3 (Version None)
Quarter: 2011Q4

REPORT INFORMATION
  Report Type: 
  Country: None (occurrence: None)
  Receive Date: 20111222
  Receipt Date: 20110926
  Transmission Date: 20120403
  Serious: Yes (Hospitalization)
  Sender: FDA-Public Use
  Company Number: UTC-010454

PATIENT
  Age: 61 Year
  Sex: Female
  Weight: 45.45 kg

DRUGS (3)
  1. REVATIO [Concomitant]
  2. COUMADIN [Concomitant]
  3. TYVASO [Suspect]
     Indication: PULMONARY ARTERIAL HYPERTENSION
     Dosage: 168  MCG  (42 MCG, 4 IN 1 D), INHALATION
     Route: 055
     Dates: start: 20110819

REACTIONS (1)
  - CONDITION AGGRAVATED [None]
